FAERS Safety Report 5485687-7 (Version None)
Quarter: 2007Q4

REPORT INFORMATION
  Report Type: 
  Country: None (occurrence: None)
  Receive Date: 20071015
  Receipt Date: 20071002
  Transmission Date: 20080405
  Serious: Yes (Hospitalization)
  Sender: FDA-Public Use
  Company Number: GB-ROCHE-519381

PATIENT
  Sex: Male
  Weight: 101.6 kg

DRUGS (2)
  1. ORLISTAT [Suspect]
     Indication: OBESITY
     Route: 048
     Dates: start: 20070518
  2. AMIODARONE [Concomitant]
     Indication: ARRHYTHMIA
     Dosage: DRUG NAME REPORTED AS: AMIODORONE
     Route: 048

REACTIONS (1)
  - IMPLANTABLE DEFIBRILLATOR INSERTION [None]
